FAERS Safety Report 6437733-1 (Version None)
Quarter: 2009Q4

REPORT INFORMATION
  Report Type: 
  Country: None (occurrence: None)
  Receive Date: 20091109
  Receipt Date: 20091022
  Transmission Date: 20100525
  Serious: Yes (Hospitalization, Other)
  Sender: FDA-Public Use
  Company Number: AUR-APL-2009-01153

PATIENT
  Age: 73 Year
  Sex: Female

DRUGS (8)
  1. METFORMIN HCL [Suspect]
     Dosage: 850MG - TID - ORAL
     Route: 048
     Dates: end: 20090510
  2. ALDACTONE [Suspect]
     Dosage: 25MG - DAILY - ORAL
     Route: 048
     Dates: end: 20090510
  3. FUROSEMIDE [Suspect]
     Dosage: 40MG - DAILY- ORAL
     Route: 048
     Dates: end: 20090510
  4. RAMIPRIL [Suspect]
     Dosage: 5MG - DAILY - ORAL
     Route: 048
     Dates: end: 20090510
  5. DIAMOX [Suspect]
     Dosage: 250MG - DAILY - ORAL
     Route: 048
     Dates: end: 20090510
  6. BISOPROLOL FUMARATE (CARDENSIEL 1.25) [Concomitant]
  7. LEVOTHYROXINE SODIUM (LEVOTHYROX 200) [Concomitant]
  8. ESOMEPRAZOLE MAGNESIUM (NEXIUM 20) [Concomitant]

REACTIONS (5)
  - BLOOD SODIUM DECREASED [None]
  - BLOOD SODIUM INCREASED [None]
  - HAEMODIALYSIS [None]
  - HYPERKALAEMIA [None]
  - RENAL FAILURE ACUTE [None]
